FAERS Safety Report 20520234 (Version 2)
Quarter: 2022Q4

REPORT INFORMATION
  Report Type: Spontaneous
  Country: GB (occurrence: GB)
  Receive Date: 20220225
  Receipt Date: 20221117
  Transmission Date: 20230112
  Serious: Yes (Life-Threatening, Hospitalization)
  Sender: FDA-Public Use
  Company Number: None

PATIENT
  Age: 43 Year
  Sex: Female
  Weight: 70 kg

DRUGS (14)
  1. EDOXABAN [Suspect]
     Active Substance: EDOXABAN
     Indication: Product used for unknown indication
     Dosage: UNK
     Route: 065
  2. ASTRAZENECA COVID-19 VACCINE [Suspect]
     Active Substance: AZD-1222
     Indication: COVID-19 prophylaxis
     Dosage: DOSE 1
     Route: 065
     Dates: start: 20210518, end: 20210518
  3. CALCIUM CARBONATE [Concomitant]
     Active Substance: CALCIUM CARBONATE
     Indication: Artificial menopause
     Dosage: UNK
     Route: 065
  4. DIHYDROCODEINE [Concomitant]
     Active Substance: DIHYDROCODEINE
     Indication: Surgery
     Dosage: UNK
     Route: 065
     Dates: start: 20210614, end: 20210617
  5. FRAGMIN [Concomitant]
     Active Substance: DALTEPARIN SODIUM
     Indication: Product used for unknown indication
     Dosage: UNK
     Route: 065
  6. FYBOGEL [Concomitant]
     Active Substance: HERBALS\PLANTAGO OVATA SEED
     Indication: Constipation
     Dosage: UNK
     Route: 065
     Dates: start: 20210611, end: 20210630
  7. HEPARIN [Concomitant]
     Active Substance: HEPARIN SODIUM
     Indication: Hospitalisation
     Dosage: UNK
     Route: 065
     Dates: start: 20210608, end: 20210615
  8. IBUPROFEN [Concomitant]
     Active Substance: IBUPROFEN
     Indication: Surgery
     Dosage: UNK
     Route: 065
     Dates: start: 20210609, end: 20210626
  9. MORPHINE [Concomitant]
     Active Substance: MORPHINE
     Indication: Surgery
     Dosage: UNK
     Route: 065
     Dates: start: 20210609, end: 20210613
  10. ACETAMINOPHEN [Concomitant]
     Active Substance: ACETAMINOPHEN
     Indication: Surgery
     Dosage: UNK
     Route: 065
     Dates: start: 20210609, end: 20210701
  11. SENNA [SENNA ALEXANDRINA LEAF] [Concomitant]
     Indication: Constipation
     Dosage: UNK
     Route: 065
     Dates: start: 20210611, end: 20210620
  12. TAMOXIFEN [Concomitant]
     Active Substance: TAMOXIFEN
     Indication: Breast cancer female
     Dosage: UNK
     Route: 065
  13. VENLAFAXINE HYDROCHLORIDE [Concomitant]
     Active Substance: VENLAFAXINE HYDROCHLORIDE
     Indication: Hot flush
     Dosage: UNK
     Route: 065
  14. ZOLADEX [Concomitant]
     Active Substance: GOSERELIN ACETATE
     Indication: Breast cancer stage III
     Dosage: UNK
     Route: 065

REACTIONS (1)
  - Pulmonary embolism [Recovering/Resolving]

NARRATIVE: CASE EVENT DATE: 20210621
